FAERS Safety Report 22002710 (Version 2)
Quarter: 2023Q1

REPORT INFORMATION
  Report Type: Report from Study
  Country: CA (occurrence: CA)
  Receive Date: 20230217
  Receipt Date: 20230224
  Transmission Date: 20230417
  Serious: Yes (Hospitalization, Other)
  Sender: FDA-Public Use
  Company Number: CA-JNJFOC-20230220078

PATIENT
  Age: 41 Year
  Sex: Female
  Weight: 65 kg

DRUGS (6)
  1. REMICADE [Suspect]
     Active Substance: INFLIXIMAB
     Indication: Ankylosing spondylitis
     Dosage: ALSO STARTED ON 13/JAN/2023
     Route: 041
     Dates: start: 20211217
  2. REMICADE [Suspect]
     Active Substance: INFLIXIMAB
     Indication: Rheumatoid arthritis
  3. ACETAMINOPHEN [Suspect]
     Active Substance: ACETAMINOPHEN
     Indication: Premedication
     Route: 065
     Dates: start: 2023, end: 2023
  4. BENADRYL [Suspect]
     Active Substance: DIPHENHYDRAMINE HYDROCHLORIDE
     Indication: Premedication
     Route: 065
     Dates: start: 2023, end: 2023
  5. HYDROCORTISONE [Suspect]
     Active Substance: HYDROCORTISONE
     Indication: Premedication
     Route: 065
     Dates: start: 2023, end: 2023
  6. INFLECTRA [Suspect]
     Active Substance: INFLIXIMAB-DYYB
     Indication: Product used for unknown indication
     Dosage: ON 10-FEB-2023, APPROXIMATELY 15 MG
     Route: 065
     Dates: end: 20230210

REACTIONS (13)
  - Vision blurred [Recovering/Resolving]
  - Hemiparesis [Recovering/Resolving]
  - Headache [Not Recovered/Not Resolved]
  - Hypertension [Recovering/Resolving]
  - Infusion related reaction [Recovering/Resolving]
  - Chills [Recovering/Resolving]
  - Lethargy [Not Recovered/Not Resolved]
  - Pallor [Not Recovered/Not Resolved]
  - Eye swelling [Not Recovered/Not Resolved]
  - Anxiety [Unknown]
  - Fatigue [Unknown]
  - Dizziness [Not Recovered/Not Resolved]
  - Wrong product administered [Unknown]

NARRATIVE: CASE EVENT DATE: 20230101
